FAERS Safety Report 6180327-6 (Version None)
Quarter: 2009Q2

REPORT INFORMATION
  Report Type: 
  Country: None (occurrence: None)
  Receive Date: 20090504
  Receipt Date: 20090504
  Transmission Date: 20091009
  Serious: Yes (Hospitalization)
  Sender: FDA-Public Use
  Company Number: None

PATIENT
  Sex: Male

DRUGS (2)
  1. LANTUS [Suspect]
     Indication: DIABETES MELLITUS
     Dosage: 30 UNITS BID SC 4-29-09 9AM, 7PM 4-30-09 9AM, 9PM
     Route: 058
     Dates: start: 20090429
  2. LANTUS [Suspect]
     Indication: DIABETES MELLITUS
     Dosage: 30 UNITS BID SC 4-29-09 9AM, 7PM 4-30-09 9AM, 9PM
     Route: 058
     Dates: start: 20090430

REACTIONS (3)
  - BLOOD GLUCOSE DECREASED [None]
  - BLOOD GLUCOSE FLUCTUATION [None]
  - PRODUCT SUBSTITUTION ISSUE [None]
